FAERS Safety Report 22035250 (Version 1)
Quarter: 2023Q1

REPORT INFORMATION
  Report Type: Spontaneous
  Country: US (occurrence: None)
  Receive Date: 20230223
  Receipt Date: 20230223
  Transmission Date: 20230417
  Serious: No
  Sender: FDA-Public Use
  Company Number: None

PATIENT
  Age: 20 Year
  Weight: 72.9 kg

DRUGS (2)
  1. DEXTROAMPHET SACCHARAT, AMPHET ASPARTATE, DEXTROAMPHET SULFATE AND AMP [Suspect]
     Active Substance: AMPHETAMINE ASPARTATE\AMPHETAMINE SULFATE\DEXTROAMPHETAMINE SACCHARATE\DEXTROAMPHETAMINE SULFATE
     Indication: Attention deficit hyperactivity disorder
     Dosage: OTHER QUANTITY : 1-2 TABLETS?
     Route: 048
  2. DEXTROAMPHET SACCHARAT, AMPHET ASPARTATE, DEXTROAMPHET SULFATE AND AMP [Suspect]
     Active Substance: AMPHETAMINE ASPARTATE\AMPHETAMINE SULFATE\DEXTROAMPHETAMINE SACCHARATE\DEXTROAMPHETAMINE SULFATE
     Indication: Attention deficit hyperactivity disorder
     Dosage: OTHER QUANTITY : 12 - 1 TO 2 TABLETS;?OTHER FREQUENCY : IN THE AFTERNOON;?
     Route: 048

REACTIONS (11)
  - Fatigue [None]
  - Headache [None]
  - Product substitution issue [None]
  - Product substitution issue [None]
  - Hangover [None]
  - Mood altered [None]
  - Irritability [None]
  - Heart rate abnormal [None]
  - Blood pressure abnormal [None]
  - Product availability issue [None]
  - Therapy cessation [None]

NARRATIVE: CASE EVENT DATE: 20221120
